FAERS Safety Report 7976424-2 (Version None)
Quarter: 2011Q4

REPORT INFORMATION
  Report Type: 
  Country: None (occurrence: None)
  Receive Date: 20111213
  Receipt Date: 20111020
  Transmission Date: 20120403
  Serious: Yes (Other)
  Sender: FDA-Public Use
  Company Number: US-AMGEN-USASP2011048597

PATIENT
  Age: 38 Year
  Sex: Male
  Weight: 81.633 kg

DRUGS (7)
  1. ENBREL [Suspect]
     Indication: PSORIASIS
     Dosage: 50 MG, QWK
     Route: 058
     Dates: start: 20110714, end: 20110917
  2. ENBREL [Suspect]
     Dosage: UNK
     Dates: start: 20081013, end: 20110101
  3. PROTOPIC                           /01219901/ [Concomitant]
     Dosage: UNK
     Dates: start: 20100308
  4. BETAMETHASONE                      /00008502/ [Concomitant]
     Dosage: UNK
  5. VANOS [Concomitant]
     Dosage: UNK
     Dates: start: 20110915
  6. OLUX [Concomitant]
     Dosage: UNK
     Dates: start: 20100308
  7. ENBREL [Suspect]
     Dosage: UNK
     Dates: start: 20080701, end: 20090101

REACTIONS (1)
  - TUBERCULIN TEST POSITIVE [None]
